FAERS Safety Report 7070881-4 (Version None)
Quarter: 2010Q4

REPORT INFORMATION
  Report Type: 
  Country: None (occurrence: None)
  Receive Date: 20101029
  Receipt Date: 20101025
  Transmission Date: 20110411
  Serious: Yes (Other)
  Sender: FDA-Public Use
  Company Number: CN-PFIZER INC-2010135024

PATIENT

DRUGS (2)
  1. VFEND [Suspect]
     Indication: ASPERGILLOSIS
     Dosage: UNK
  2. AMPHOTERICIN B [Suspect]

REACTIONS (2)
  - BODY TEMPERATURE INCREASED [None]
  - DRUG INTERACTION [None]
